FAERS Safety Report 7642068-5 (Version None)
Quarter: 2011Q3

REPORT INFORMATION
  Report Type: 
  Country: None (occurrence: None)
  Receive Date: 20110728
  Receipt Date: 20110721
  Transmission Date: 20111222
  Serious: Yes (Hospitalization)
  Sender: FDA-Public Use
  Company Number: US-ELI_LILLY_AND_COMPANY-US201106001537

PATIENT
  Sex: Male
  Weight: 67.574 kg

DRUGS (7)
  1. METOPROLOL TARTRATE [Concomitant]
  2. IMDUR [Concomitant]
  3. COZAAR [Concomitant]
  4. SYNTHROID [Concomitant]
  5. METFORMIN HCL [Concomitant]
  6. ZOCOR [Concomitant]
  7. EFFIENT [Suspect]
     Dosage: UNK
     Dates: start: 20110513

REACTIONS (1)
  - SYNCOPE [None]
